FAERS Safety Report 7640144-4 (Version None)
Quarter: 2011Q3

REPORT INFORMATION
  Report Type: 
  Country: None (occurrence: None)
  Receive Date: 20110728
  Receipt Date: 20110623
  Transmission Date: 20111222
  Serious: No
  Sender: FDA-Public Use
  Company Number: US-BAYER-2011-055503

PATIENT
  Age: 95 Year
  Sex: Female
  Weight: 53.061 kg

DRUGS (6)
  1. ACETAMINOPHEN [Concomitant]
  2. ALEVE (CAPLET) [Suspect]
     Indication: HEADACHE
     Dosage: 8 12 CAPLETS AT ONCE, BOTTLE COUNT 200S
     Route: 048
     Dates: start: 20110623
  3. NORVASC [Concomitant]
     Dosage: DAILY DOSE 7.5 MG
  4. EYE DROPS [Concomitant]
  5. BUMEX [Concomitant]
     Dosage: DAILY DOSE .5 MG
  6. ATENOLOL [Concomitant]
     Dosage: DAILY DOSE 25 MG

REACTIONS (1)
  - NO ADVERSE EVENT [None]
